FAERS Safety Report 8995320 (Version 2)
Quarter: 2013Q1

REPORT INFORMATION
  Report Type: Spontaneous
  Country: CA (occurrence: CA)
  Receive Date: 20130103
  Receipt Date: 20130311
  Transmission Date: 20140127
  Serious: No
  Sender: FDA-Public Use
  Company Number: CA-ELI_LILLY_AND_COMPANY-CA201212006970

PATIENT
  Age: 71 Year
  Sex: Male

DRUGS (10)
  1. CIALIS [Suspect]
     Indication: ERECTILE DYSFUNCTION
     Dosage: 20 MG, UNK
  2. CIALIS [Suspect]
     Dosage: 5 MG, QD
     Dates: start: 2010
  3. TAMSULOSIN [Concomitant]
     Indication: BENIGN PROSTATIC HYPERPLASIA
  4. CRESTOR [Concomitant]
     Dosage: 20 MG, QD
  5. GLUCONORM [Concomitant]
     Dosage: 3 MG, BID
  6. METFORMIN [Concomitant]
     Dosage: 1000 MG, BID
  7. ALTACE [Concomitant]
     Dosage: 2.5 MG, QD
  8. FERROUS GLUCONATE [Concomitant]
     Dosage: 300 MG, TID
  9. MULTIVITAMIN [Concomitant]
  10. PANTOPRAZOLE [Concomitant]
     Indication: GASTRIC HAEMORRHAGE
     Dosage: 40 MG, BID

REACTIONS (1)
  - Drug ineffective [Unknown]
